FAERS Safety Report 8083180-9 (Version None)
Quarter: 2012Q1

REPORT INFORMATION
  Report Type: 
  Country: None (occurrence: None)
  Receive Date: 20120127
  Receipt Date: 20110223
  Transmission Date: 20120608
  Serious: No
  Sender: FDA-Public Use
  Company Number: US-ABBOTT-11P-163-0704701-00

PATIENT
  Sex: Male
  Weight: 41.314 kg

DRUGS (25)
  1. METHOTREXATE [Concomitant]
     Indication: CROHN'S DISEASE
     Dosage: 2.5MG-4 TABS WEDNESDAY, 2 TABS THURSDAY
     Route: 048
  2. MULTI-VITAMIN [Concomitant]
     Indication: VITAMIN SUPPLEMENTATION
  3. PRILOSEC [Concomitant]
     Indication: GASTROOESOPHAGEAL REFLUX DISEASE
     Route: 048
  4. ASCORBIC ACID [Concomitant]
     Indication: PRODUCT USED FOR UNKNOWN INDICATION
  5. XIFAXAN [Concomitant]
     Indication: PRODUCT USED FOR UNKNOWN INDICATION
  6. HUMIRA [Suspect]
     Dates: start: 20110101
  7. MIRTAZAPINE [Concomitant]
     Indication: PRODUCT USED FOR UNKNOWN INDICATION
     Dosage: 15-MG AT BEDTIME
     Route: 048
  8. FOLIC ACID [Concomitant]
     Indication: VITAMIN SUPPLEMENTATION
     Route: 048
  9. VITAMIN TAB [Concomitant]
     Indication: VITAMIN SUPPLEMENTATION
  10. HUMIRA [Suspect]
     Dates: start: 20090601
  11. ALENDRONATE SODIUM [Concomitant]
     Indication: PRODUCT USED FOR UNKNOWN INDICATION
     Route: 048
  12. REMERON [Concomitant]
     Indication: APPETITE DISORDER
  13. HUMIRA [Suspect]
     Indication: CROHN'S DISEASE
     Dates: start: 20090601
  14. FLORICET [Concomitant]
     Indication: PRODUCT USED FOR UNKNOWN INDICATION
  15. NORTRIPTYLINE HCL [Concomitant]
     Indication: PRODUCT USED FOR UNKNOWN INDICATION
     Dosage: 25MG-AT BEDTIME
     Route: 048
  16. KEPPRA XR [Concomitant]
     Indication: CONVULSION
     Route: 048
  17. PRISTIQ [Concomitant]
     Indication: INCREASED APPETITE
  18. PRESTIQUE [Concomitant]
     Indication: DEPRESSION
  19. GABITRIL [Concomitant]
     Indication: HEADACHE
     Dosage: AT BEDTIME AS NEEDED
     Route: 048
  20. XANAX [Concomitant]
     Indication: SLEEP DISORDER THERAPY
     Route: 048
  21. VITAMIN D [Concomitant]
     Indication: VITAMIN SUPPLEMENTATION
     Route: 048
  22. IRON [Concomitant]
     Indication: PRODUCT USED FOR UNKNOWN INDICATION
     Route: 048
  23. MAGNESIUM [Concomitant]
     Indication: MINERAL SUPPLEMENTATION
  24. HUMIRA [Suspect]
     Dates: start: 20080101, end: 20110101
  25. OXYCONTIN [Concomitant]
     Indication: PAIN
     Route: 048

REACTIONS (7)
  - INFLAMMATION [None]
  - GASTROINTESTINAL PAIN [None]
  - SCAR [None]
  - DEVICE MALFUNCTION [None]
  - ABDOMINAL PAIN [None]
  - ABDOMINAL RIGIDITY [None]
  - ABDOMINAL DISTENSION [None]
